FAERS Safety Report 19284882 (Version 1)
Quarter: 2021Q2

REPORT INFORMATION
  Report Type: Spontaneous
  Country: US (occurrence: US)
  Receive Date: 20210521
  Receipt Date: 20210521
  Transmission Date: 20210717
  Serious: Yes (Hospitalization)
  Sender: FDA-Public Use
  Company Number: None

PATIENT
  Age: 51 Year
  Sex: Male
  Weight: 112.68 kg

DRUGS (22)
  1. VEKLURY [Suspect]
     Active Substance: REMDESIVIR
     Indication: COVID-19
     Route: 040
     Dates: start: 20210512, end: 20210515
  2. LOPERIMIDE 2MG [Concomitant]
     Dates: start: 20210516
  3. ACETAMINOPHEN 650MG [Concomitant]
     Dates: start: 20210512
  4. MORPHINE INJ 2MG [Concomitant]
     Dates: start: 20210513
  5. FUROSEMIDE INJ 40MG [Concomitant]
     Dates: start: 20210514, end: 20210514
  6. ACETAMINOPHEN + BUTALBITAL + CAFFEINE 1 TAB [Concomitant]
     Dates: start: 20210512
  7. ONDANSETRON INJ 4MG [Concomitant]
     Dates: start: 20210512, end: 20210514
  8. ALBUMIN HUMAN 25% [Concomitant]
     Active Substance: ALBUMIN HUMAN
     Dates: start: 20210517, end: 20210517
  9. TOCILIZUMAB 800MG IVPB [Concomitant]
     Dates: start: 20210512, end: 20210512
  10. AMIODARONE 200MG [Concomitant]
     Active Substance: AMIODARONE
     Dates: start: 20210515
  11. CALCIUM GLUCONATE INJ 10MG [Concomitant]
     Dates: start: 20210519, end: 20210519
  12. DEXTROSE 50% INJ [Concomitant]
     Dates: start: 20210519, end: 20210519
  13. ZOLPIDEM [Concomitant]
     Active Substance: ZOLPIDEM TARTRATE
     Dates: start: 20210516
  14. ARGATROBAN 0.5MCG/KG/MIN [Concomitant]
     Dates: start: 20210518
  15. FUROSEMIDE INJ 40MG [Concomitant]
     Dates: start: 20210518, end: 20210518
  16. AMIODARONE (INITIAL) 24HR BAG #2 (1.8MG/ML) [Concomitant]
     Dates: start: 20210514, end: 20210515
  17. FUROSEMIDE INJ 40MG [Concomitant]
     Dates: start: 20210516, end: 20210516
  18. FUROSEMIDE INJ 40MG [Concomitant]
     Dates: start: 20210516, end: 20210516
  19. ALBUMIN HUMAN 25% [Concomitant]
     Active Substance: ALBUMIN HUMAN
     Dates: start: 20210518, end: 20210518
  20. AMIODARONE 150MG [Concomitant]
     Dates: start: 20210514, end: 20210514
  21. AMIODARONE (INITIAL) 24HR BAG #1 (1.8MG/ML) [Concomitant]
     Dates: start: 20210514, end: 20210514
  22. ETOMIDATE INJ 20MG [Concomitant]
     Dates: start: 20210519, end: 20210519

REACTIONS (2)
  - Alanine aminotransferase increased [None]
  - Aspartate aminotransferase increased [None]

NARRATIVE: CASE EVENT DATE: 20210516
